FAERS Safety Report 9822996 (Version 2)
Quarter: 2014Q1

REPORT INFORMATION
  Report Type: Spontaneous
  Country: US (occurrence: US)
  Receive Date: 20140116
  Receipt Date: 20140226
  Transmission Date: 20141002
  Serious: No
  Sender: FDA-Public Use
  Company Number: US-B.I. PHARMACEUTICALS,INC./RIDGEFIELD-2014-BI-00736BP

PATIENT
  Age: 90 Year
  Sex: Female
  Weight: 45.9 kg

DRUGS (1)
  1. RANITIDINE (RANITIDINE HYDROCHLORIDE) 150 MG [Suspect]
     Indication: GASTROOESOPHAGEAL REFLUX DISEASE
     Dosage: 150 MG
     Route: 048
     Dates: start: 20131226, end: 20140107

REACTIONS (2)
  - Abnormal dreams [Not Recovered/Not Resolved]
  - Ankle deformity [Not Recovered/Not Resolved]
